FAERS Safety Report 26044797 (Version 1)
Quarter: 2025Q4

REPORT INFORMATION
  Report Type: Spontaneous
  Country: US (occurrence: US)
  Receive Date: 20251114
  Receipt Date: 20251114
  Transmission Date: 20260117
  Serious: Yes (Other)
  Sender: OPTINOSE INC
  Company Number: US-OptiNose US, Inc-2022OPT000180

PATIENT

DRUGS (2)
  1. XHANCE [Suspect]
     Active Substance: FLUTICASONE PROPIONATE
     Indication: Product used for unknown indication
     Dosage: 372 MICROGRAM (2 SPRAYS PER NOSTRIL), BID
     Route: 045
     Dates: start: 20220322
  2. DEVICE [Suspect]
     Active Substance: DEVICE
     Indication: Product used for unknown indication
     Dosage: UNK UNK
     Route: 045

REACTIONS (2)
  - Epistaxis [Unknown]
  - Oropharyngeal pain [Unknown]

NARRATIVE: CASE EVENT DATE: 20220322
